FAERS Safety Report 8452332-8 (Version None)
Quarter: 2012Q2

REPORT INFORMATION
  Report Type: 
  Country: None (occurrence: None)
  Receive Date: 20120620
  Receipt Date: 20120608
  Transmission Date: 20120825
  Serious: Yes (Hospitalization)
  Sender: FDA-Public Use
  Company Number: US-ELI_LILLY_AND_COMPANY-US201106002247

PATIENT
  Sex: Female
  Weight: 63.039 kg

DRUGS (24)
  1. FORTEO [Suspect]
     Indication: OSTEOPOROSIS
     Dosage: 20 UG, QD
     Dates: start: 20110525
  2. FORTEO [Suspect]
     Dosage: 20 UG, QD
     Route: 065
  3. STOOL SOFTENER [Concomitant]
  4. EFFIENT [Concomitant]
  5. VITAMINS NOS [Concomitant]
  6. LOVAZA [Concomitant]
  7. PLAVIX [Concomitant]
  8. LASIX [Concomitant]
  9. GAVISCON [Concomitant]
  10. CYMBALTA [Concomitant]
  11. CARAFATE [Concomitant]
  12. NEURONTIN [Concomitant]
  13. FORTEO [Suspect]
     Dosage: 20 UG, QD
     Route: 065
     Dates: end: 20111021
  14. CRESTOR [Concomitant]
  15. ZETIA [Concomitant]
  16. PHENERGAN [Concomitant]
  17. PREDNISONE TAB [Concomitant]
  18. FORTEO [Suspect]
     Dosage: 20 UG, QD
     Dates: end: 20120101
  19. METOPROLOL SUCCINATE [Concomitant]
  20. CLONAZEPAM [Concomitant]
  21. NEXIUM [Concomitant]
  22. TRICOR [Concomitant]
  23. FORTEO [Suspect]
     Dosage: 20 UG, QD
  24. PEPCID [Concomitant]

REACTIONS (28)
  - TREMOR [None]
  - BONE DISORDER [None]
  - MYALGIA [None]
  - MEMORY IMPAIRMENT [None]
  - DEHYDRATION [None]
  - UNEVALUABLE EVENT [None]
  - HEADACHE [None]
  - NAUSEA [None]
  - FATIGUE [None]
  - URINARY TRACT INFECTION [None]
  - PALPITATIONS [None]
  - DRY MOUTH [None]
  - NASOPHARYNGITIS [None]
  - INFECTION [None]
  - DYSPNOEA [None]
  - BALANCE DISORDER [None]
  - CHEST PAIN [None]
  - DIARRHOEA [None]
  - CALCINOSIS [None]
  - MALAISE [None]
  - DRUG DOSE OMISSION [None]
  - HEAD DISCOMFORT [None]
  - CONTUSION [None]
  - GASTRIC DISORDER [None]
  - PNEUMONIA [None]
  - HEART RATE IRREGULAR [None]
  - ARTHRITIS [None]
  - DIZZINESS [None]
